FAERS Safety Report 11825209 (Version 2)
Quarter: 2015Q4

REPORT INFORMATION
  Report Type: Report from Study
  Country: BE (occurrence: BE)
  Receive Date: 20151211
  Receipt Date: 20151222
  Transmission Date: 20160305
  Serious: Yes (Hospitalization)
  Sender: FDA-Public Use
  Company Number: BE-AMGEN-BELNI2015117960

PATIENT
  Age: 47 Year
  Sex: Male
  Weight: 82 kg

DRUGS (6)
  1. PANTOMED                           /01263204/ [Concomitant]
     Active Substance: PANTOPRAZOLE SODIUM
     Indication: ABDOMINAL PAIN
     Dosage: UNK
     Route: 048
  2. SOTALEX [Concomitant]
     Active Substance: SOTALOL
     Dosage: UNK
  3. XANAX [Concomitant]
     Active Substance: ALPRAZOLAM
     Indication: DYSPNOEA
     Dosage: UNK
     Dates: start: 20150721
  4. ENBREL [Suspect]
     Active Substance: ETANERCEPT
     Indication: ANKYLOSING SPONDYLITIS
     Dosage: 50 MG, WEEKLY
     Route: 058
     Dates: start: 20140601, end: 20150824
  5. ENBREL [Suspect]
     Active Substance: ETANERCEPT
     Dosage: 50 MG, WEEKLY
     Route: 058
     Dates: start: 20150906, end: 20150908
  6. PANTOMED                           /00178901/ [Concomitant]
     Indication: ABDOMINAL PAIN
     Route: 048

REACTIONS (1)
  - Hyperventilation [Unknown]

NARRATIVE: CASE EVENT DATE: 20150721
